FAERS Safety Report 9249721 (Version 1)
Quarter: 2013Q2

REPORT INFORMATION
  Report Type: Spontaneous
  Country: IT (occurrence: IT)
  Receive Date: 20130423
  Receipt Date: 20130423
  Transmission Date: 20140414
  Serious: Yes (Hospitalization)
  Sender: FDA-Public Use
  Company Number: IT-PFIZER INC-2013124931

PATIENT
  Age: 61 Year
  Sex: Male

DRUGS (5)
  1. RAMIPRIL [Suspect]
     Indication: HYPERTENSION
     Dosage: 10 MG, DAILY
     Route: 048
     Dates: start: 20110101, end: 20130415
  2. FULCROSUPRA [Concomitant]
     Dosage: 1 G, UNK
  3. COMPETACT [Concomitant]
     Indication: TYPE 2 DIABETES MELLITUS
     Dosage: UNK
  4. IPERTEN [Concomitant]
     Indication: HYPERTENSION
     Dosage: UNK
  5. SIVASTIN [Concomitant]
     Dosage: UNK

REACTIONS (3)
  - Pharyngeal oedema [Recovering/Resolving]
  - Laryngeal oedema [Recovering/Resolving]
  - Dysphagia [Recovering/Resolving]
